FAERS Safety Report 25361211 (Version 1)
Quarter: 2025Q2

REPORT INFORMATION
  Report Type: Spontaneous
  Country: DE (occurrence: DE)
  Receive Date: 20250527
  Receipt Date: 20250527
  Transmission Date: 20250716
  Serious: Yes (Congenital Anomaly, Other)
  Sender: ACCORD
  Company Number: None

PATIENT
  Sex: Female
  Weight: 2.235 kg

DRUGS (3)
  1. SERTRALINE [Suspect]
     Active Substance: SERTRALINE HYDROCHLORIDE
     Indication: Depression
     Dosage: 25 MG/D, ENTIRE PREGNANCY
     Dates: start: 201810, end: 201907
  2. CYTOTEC [Concomitant]
     Active Substance: MISOPROSTOL
     Indication: Labour induction
  3. FOLIC ACID [Concomitant]
     Active Substance: FOLIC ACID
     Indication: Prophylaxis of neural tube defect
     Dates: start: 201810, end: 201907

REACTIONS (3)
  - Small for dates baby [Recovered/Resolved]
  - Microcephaly [Unknown]
  - Foetal exposure during pregnancy [Unknown]
